FAERS Safety Report 4370808-X (Version None)
Quarter: 2004Q2

REPORT INFORMATION
  Report Type: 
  Country: None (occurrence: None)
  Receive Date: 20040601
  Receipt Date: 20040413
  Transmission Date: 20050107
  Serious: Yes (Death)
  Sender: FDA-Public Use
  Company Number: D01200401266

PATIENT
  Age: 31 Year
  Sex: Female
  Weight: 40.6 kg

DRUGS (6)
  1. CISPLATIN [Suspect]
     Indication: CARCINOMA
     Dosage: 100 MG/M2 OTHER  - INTRAVENOUS NOS
     Route: 042
     Dates: start: 20040126, end: 20040126
  2. RANITIDINE [Concomitant]
  3. CODEINE [Concomitant]
  4. HYDROCORTISONE [Concomitant]
  5. CEFTRIAXONE [Concomitant]
  6. MIDAZOLAM HCL [Concomitant]

REACTIONS (5)
  - CARDIO-RESPIRATORY ARREST [None]
  - DYSPNOEA [None]
  - LARYNGEAL OEDEMA [None]
  - MUCOSAL INFLAMMATION [None]
  - OBSTRUCTIVE AIRWAYS DISORDER [None]
